FAERS Safety Report 10547258 (Version 1)
Quarter: 2014Q4

REPORT INFORMATION
  Report Type: Spontaneous
  Country: KR (occurrence: KR)
  Receive Date: 20141028
  Receipt Date: 20141028
  Transmission Date: 20150529
  Serious: Yes (Death)
  Sender: FDA-Public Use
  Company Number: KR-ROCHE-1479522

PATIENT
  Age: 74 Year
  Sex: Female

DRUGS (1)
  1. BONVIVA [Suspect]
     Active Substance: IBANDRONATE SODIUM
     Indication: OSTEOPOROSIS
     Dosage: 25/OCT/2013, 25/JAN/2014, 25/APR/2014 AND 25/JUL/2014 (FIVE TIMES IN TOTAL), PATIENT RECEIVED IBANDR
     Route: 065
     Dates: start: 20130725, end: 20140725

REACTIONS (1)
  - Sudden death [Fatal]

NARRATIVE: CASE EVENT DATE: 201408
